FAERS Safety Report 9617449 (Version 2)
Quarter: 2013Q4

REPORT INFORMATION
  Report Type: Report from Study
  Country: IT (occurrence: IT)
  Receive Date: 20131011
  Receipt Date: 20131011
  Transmission Date: 20140711
  Serious: Yes (Death, Other)
  Sender: FDA-Public Use
  Company Number: IT-B.I. PHARMACEUTICALS,INC./RIDGEFIELD-2013-BI-23988BI

PATIENT
  Age: 76 Year
  Sex: Female
  Weight: 73 kg

DRUGS (13)
  1. BIBW 2992 [Suspect]
     Indication: SQUAMOUS CELL CARCINOMA OF LUNG
     Dosage: 40 MG
     Route: 048
     Dates: start: 20121115, end: 20121213
  2. METFORMIN [Concomitant]
     Indication: DIABETES MELLITUS
     Route: 048
  3. CARDIOASPIRIN [Concomitant]
     Indication: ANTIPLATELET THERAPY
     Route: 048
  4. SIVASTIN [Concomitant]
     Indication: HYPERTENSION
     Route: 048
  5. LANSOPRAZOLE [Concomitant]
     Indication: PROPHYLAXIS AGAINST GASTROINTESTINAL ULCER
     Route: 048
  6. DELTACORTENE [Concomitant]
     Indication: DYSPNOEA
     Route: 048
  7. FERROGRAD [Concomitant]
     Indication: ANAEMIA
     Route: 048
  8. IMODIUM [Concomitant]
     Indication: DIARRHOEA
     Route: 048
     Dates: start: 20121117
  9. MYCOSTATIN [Concomitant]
     Indication: STOMATITIS
     Route: 061
     Dates: start: 20121122
  10. ENTEROGERMINA [Concomitant]
     Indication: DIARRHOEA
     Route: 048
     Dates: start: 20121122
  11. OXYGEN [Concomitant]
     Indication: DYSPNOEA
     Dates: start: 20121120
  12. LASIX [Concomitant]
     Indication: HYPERTENSION
     Route: 048
     Dates: start: 20121203
  13. TARGIN [Concomitant]
     Indication: PAIN IN EXTREMITY
     Route: 048
     Dates: start: 20121203

REACTIONS (2)
  - Malignant neoplasm progression [Fatal]
  - Pulmonary embolism [Unknown]
